FAERS Safety Report 18377065 (Version 1)
Quarter: 2020Q4

REPORT INFORMATION
  Report Type: Other
  Country: CA (occurrence: CA)
  Receive Date: 20201013
  Receipt Date: 20201013
  Transmission Date: 20210114
  Serious: Yes (Life-Threatening, Hospitalization, Other)
  Sender: FDA-Public Use
  Company Number: CA-APOTEX-2019AP018207

PATIENT
  Age: 65 Year
  Sex: Female
  Weight: 64 kg

DRUGS (6)
  1. CELECOXIB. [Suspect]
     Active Substance: CELECOXIB
     Dosage: UNK
     Route: 065
  2. DEPO-MEDROL LIDOCAINE [Suspect]
     Active Substance: LIDOCAINE HYDROCHLORIDE\METHYLPREDNISOLONE ACETATE
     Dosage: UNK
     Route: 014
  3. LANSOPRAZOLE. [Concomitant]
     Active Substance: LANSOPRAZOLE
     Indication: PRODUCT USED FOR UNKNOWN INDICATION
     Dosage: UNK
     Route: 065
  4. DEPO-MEDROL LIDOCAINE [Suspect]
     Active Substance: LIDOCAINE HYDROCHLORIDE\METHYLPREDNISOLONE ACETATE
     Indication: PRODUCT USED FOR UNKNOWN INDICATION
     Dosage: UNK
     Route: 014
  5. CELECOXIB. [Suspect]
     Active Substance: CELECOXIB
     Indication: ARTHRALGIA
     Dosage: 100 MG, BID
     Route: 048
  6. VENLAFAXINE HYDROCHLORIDE. [Concomitant]
     Active Substance: VENLAFAXINE HYDROCHLORIDE
     Indication: PRODUCT USED FOR UNKNOWN INDICATION
     Dosage: UNK
     Route: 065

REACTIONS (1)
  - Acute myocardial infarction [Recovering/Resolving]
